FAERS Safety Report 9540007 (Version 1)
Quarter: 2013Q2

REPORT INFORMATION
  Report Type: Spontaneous
  Country: US (occurrence: None)
  Receive Date: 20130506
  Receipt Date: 20130506
  Transmission Date: 20140414
  Serious: Yes (Other)
  Sender: FDA-Public Use
  Company Number: 3004763499-2012-00004

PATIENT
  Age: 19 Year
  Sex: Female
  Weight: 106.6 kg

DRUGS (1)
  1. HIBICLENS [Suspect]
     Indication: THERAPEUTIC SKIN CARE TOPICAL
     Dates: start: 20120220

REACTIONS (3)
  - Injury [None]
  - Poisoning [None]
  - Procedural complication [None]
